FAERS Safety Report 5290851-6 (Version None)
Quarter: 2007Q2

REPORT INFORMATION
  Report Type: 
  Country: None (occurrence: None)
  Receive Date: 20070409
  Receipt Date: 20070330
  Transmission Date: 20071010
  Serious: Yes (Hospitalization)
  Sender: FDA-Public Use
  Company Number: FR-PFIZER INC-2007025807

PATIENT
  Age: 78 Year
  Sex: Male
  Weight: 83 kg

DRUGS (7)
  1. AMLOR [Suspect]
     Indication: ESSENTIAL HYPERTENSION
     Route: 048
  2. TRIATEC [Suspect]
     Indication: ESSENTIAL HYPERTENSION
     Dosage: TEXT:1 DF
     Route: 048
  3. ELISOR [Suspect]
     Indication: HYPERCHOLESTEROLAEMIA
     Route: 048
  4. VANCOMYCIN [Suspect]
     Indication: ACUTE ENDOCARDITIS
     Route: 042
     Dates: start: 20061214, end: 20070102
  5. RIFAMPICIN [Suspect]
     Indication: ACUTE ENDOCARDITIS
     Route: 048
     Dates: start: 20061214, end: 20061227
  6. GENTALLINE [Suspect]
     Indication: ACUTE ENDOCARDITIS
     Dates: start: 20061214, end: 20061221
  7. PYOSTACINE [Concomitant]

REACTIONS (3)
  - ERYSIPELAS [None]
  - RASH [None]
  - RENAL FAILURE ACUTE [None]
